FAERS Safety Report 6719384-4 (Version None)
Quarter: 2010Q2

REPORT INFORMATION
  Report Type: 
  Country: None (occurrence: None)
  Receive Date: 20100511
  Receipt Date: 20100505
  Transmission Date: 20101027
  Serious: Yes (Hospitalization)
  Sender: FDA-Public Use
  Company Number: US-BRISTOL-MYERS SQUIBB COMPANY-15096050

PATIENT
  Age: 74 Year
  Sex: Female

DRUGS (5)
  1. AVAPRO [Suspect]
     Indication: CATHETERISATION CARDIAC
     Dates: start: 20070101
  2. WARFARIN SODIUM [Suspect]
     Indication: ATRIAL FIBRILLATION
  3. TOPROL-XL [Suspect]
     Indication: ATRIAL FIBRILLATION
  4. LASIX [Suspect]
     Indication: BLOOD SODIUM DECREASED
  5. PREVACID [Concomitant]

REACTIONS (7)
  - ANURIA [None]
  - BACK PAIN [None]
  - BLOOD SODIUM DECREASED [None]
  - DYSPEPSIA [None]
  - DYSPHAGIA [None]
  - EYE PAIN [None]
  - HIATUS HERNIA [None]
